FAERS Safety Report 8832072 (Version 1)
Quarter: 2012Q4

REPORT INFORMATION
  Report Type: 
  Country: US (occurrence: US)
  Receive Date: 20121009
  Receipt Date: 20121009
  Transmission Date: 20130627
  Serious: Yes (Hospitalization, Other)
  Sender: FDA-Public Use
  Company Number: US-ROCHE-1134146

PATIENT
  Age: 84 Year
  Sex: Female

DRUGS (12)
  1. RITUXAN [Suspect]
     Indication: ANAEMIA HAEMOLYTIC AUTOIMMUNE
     Route: 050
  2. RITUXAN [Suspect]
     Indication: OFF LABEL USE
  3. COUMADIN [Concomitant]
  4. KLONOPIN [Concomitant]
  5. THYROXINE [Concomitant]
  6. ZOLOFT [Concomitant]
  7. PREDNISONE [Concomitant]
  8. LASIX [Concomitant]
  9. K-DUR [Concomitant]
  10. DIGOXIN [Concomitant]
  11. CYTOXAN [Concomitant]
  12. ERYTHROPOIETIN [Concomitant]

REACTIONS (5)
  - Chest pain [Unknown]
  - Anaemia [Unknown]
  - Vomiting [Unknown]
  - Abdominal pain [Unknown]
  - Altered state of consciousness [Unknown]
